FAERS Safety Report 9458452 (Version 1)
Quarter: 2013Q3

REPORT INFORMATION
  Report Type: Spontaneous
  Country: US (occurrence: None)
  Receive Date: 20130813
  Receipt Date: 20130813
  Transmission Date: 20140515
  Serious: Yes (Other)
  Sender: FDA-Public Use
  Company Number: None

PATIENT
  Age: 66 Year
  Sex: Female
  Weight: 104 kg

DRUGS (6)
  1. DOXIL [Suspect]
     Indication: OVARIAN CANCER
     Dosage: 30MG/M2  --  INTRAVENOUS?6 CYCLES
     Route: 042
  2. COUMADIN [Concomitant]
  3. ZOFRAN [Concomitant]
  4. PHENERGAN [Concomitant]
  5. CYTOMEL [Concomitant]
  6. SYNTHROID [Concomitant]

REACTIONS (2)
  - Mucosal inflammation [None]
  - Speech disorder [None]
